FAERS Safety Report 23849989 (Version 1)
Quarter: 2024Q2

REPORT INFORMATION
  Report Type: Spontaneous
  Country: US (occurrence: None)
  Receive Date: 20240512
  Receipt Date: 20240512
  Transmission Date: 20240715
  Serious: Yes (Disabling)
  Sender: FDA-Public Use
  Company Number: None

PATIENT
  Age: 51 Year
  Sex: Female
  Weight: 55.35 kg

DRUGS (7)
  1. LEVOFLOXACIN [Suspect]
     Active Substance: LEVOFLOXACIN
     Indication: Bacterial infection
     Dosage: OTHER QUANTITY : 7 TABLET(S);?FREQUENCY : DAILY;?
     Route: 048
     Dates: start: 20130812, end: 20130818
  2. Flonase, [Concomitant]
  3. allegra, [Concomitant]
  4. estrogen and progesterone [Concomitant]
  5. . testosterone, [Concomitant]
  6. Multi-vitamin, [Concomitant]
  7. Vitamin D and Calcium [Concomitant]

REACTIONS (2)
  - Tendonitis [None]
  - Arthralgia [None]

NARRATIVE: CASE EVENT DATE: 20130812
